FAERS Safety Report 11896482 (Version 1)
Quarter: 2016Q1

REPORT INFORMATION
  Report Type: Spontaneous
  Country: MX (occurrence: MX)
  Receive Date: 20160107
  Receipt Date: 20160107
  Transmission Date: 20160526
  Serious: Yes (Other)
  Sender: FDA-Public Use
  Company Number: PHHY2016MX000875

PATIENT
  Sex: Female
  Weight: 52 kg

DRUGS (1)
  1. EXFORGE HCT [Suspect]
     Active Substance: AMLODIPINE BESYLATE\HYDROCHLOROTHIAZIDE\VALSARTAN
     Indication: HYPERTENSION
     Dosage: 1 DF, QD
     Route: 048

REACTIONS (7)
  - Breast cancer [Recovered/Resolved]
  - Diabetes mellitus [Not Recovered/Not Resolved]
  - Ophthalmoplegia [Recovering/Resolving]
  - Bronchitis [Recovered/Resolved]
  - Productive cough [Recovered/Resolved]
  - Kidney infection [Unknown]
  - Dyspnoea [Recovered/Resolved]
